APPROVED DRUG PRODUCT: ERYC
Active Ingredient: ERYTHROMYCIN
Strength: 250MG
Dosage Form/Route: CAPSULE, DELAYED REL PELLETS;ORAL
Application: A062338 | Product #001
Applicant: WARNER CHILCOTT CO LLC
Approved: Approved Prior to Jan 1, 1982 | RLD: No | RS: No | Type: DISCN